FAERS Safety Report 5381281-7 (Version None)
Quarter: 2007Q3

REPORT INFORMATION
  Report Type: 
  Country: None (occurrence: None)
  Receive Date: 20070702
  Receipt Date: 20070409
  Transmission Date: 20080115
  Serious: Yes (Hospitalization)
  Sender: FDA-Public Use
  Company Number: SPV1-2007-01506

PATIENT
  Age: 13 Year
  Sex: Male

DRUGS (2)
  1. PENTASA [Suspect]
     Indication: COLITIS ULCERATIVE
     Dosage: 1500 MG DAILY, ORAL; 2250 MG DAILY
     Route: 048
     Dates: start: 20060906, end: 20060920
  2. PENTASA [Suspect]
     Indication: COLITIS ULCERATIVE
     Dosage: 1500 MG DAILY, ORAL; 2250 MG DAILY
     Route: 048
     Dates: start: 20060921, end: 20060924

REACTIONS (1)
  - COLITIS ULCERATIVE [None]
